FAERS Safety Report 11275746 (Version 2)
Quarter: 2018Q1

REPORT INFORMATION
  Report Type: Report from Study
  Country: GB (occurrence: GB)
  Receive Date: 20150716
  Receipt Date: 20180315
  Transmission Date: 20180508
  Serious: Yes (Other)
  Sender: FDA-Public Use
  Company Number: GB-JNJFOC-20150710088

PATIENT
  Age: 80 Year
  Sex: Female

DRUGS (2)
  1. RIVAROXABAN [Suspect]
     Active Substance: RIVAROXABAN
     Indication: NEOPLASM MALIGNANT
     Route: 048
     Dates: start: 20140226, end: 20140306
  2. RIVAROXABAN [Suspect]
     Active Substance: RIVAROXABAN
     Indication: THROMBOSIS PROPHYLAXIS
     Route: 048
     Dates: start: 20140226, end: 20140306

REACTIONS (4)
  - Epistaxis [Recovered/Resolved]
  - Non-cardiac chest pain [Recovered/Resolved]
  - Mouth haemorrhage [Recovered/Resolved]
  - Laryngeal haemorrhage [Recovered/Resolved]

NARRATIVE: CASE EVENT DATE: 20140306
